FAERS Safety Report 8343721-0 (Version None)
Quarter: 2012Q2

REPORT INFORMATION
  Report Type: 
  Country: None (occurrence: None)
  Receive Date: 20120508
  Receipt Date: 20120508
  Transmission Date: 20120825
  Serious: Yes (Disabling, Other)
  Sender: FDA-Public Use
  Company Number: None

PATIENT
  Age: 7 Year
  Sex: Male
  Weight: 2543.7 kg

DRUGS (3)
  1. ADVAIR HFA [Suspect]
     Indication: MULTIPLE ALLERGIES
     Dosage: 2 PUFFS
     Route: 055
     Dates: start: 20101201, end: 20120420
  2. ADVAIR HFA [Suspect]
     Indication: ASTHMA
     Dosage: 2 PUFFS
     Route: 055
     Dates: start: 20101201, end: 20120420
  3. VERAMYST [Concomitant]
     Indication: MULTIPLE ALLERGIES
     Dosage: 1 SPRAY
     Route: 045
     Dates: start: 20101201, end: 20120420

REACTIONS (1)
  - ADRENAL SUPPRESSION [None]
